FAERS Safety Report 5288179-3 (Version None)
Quarter: 2007Q1

REPORT INFORMATION
  Report Type: 
  Country: None (occurrence: None)
  Receive Date: 20070330
  Receipt Date: 20070304
  Transmission Date: 20070707
  Serious: Yes (Hospitalization)
  Sender: FDA-Public Use
  Company Number: S06-ISR-05456-01

PATIENT
  Age: 52 Year
  Sex: Male
  Weight: 90 kg

DRUGS (1)
  1. ESCITALOPRAM [Suspect]
     Indication: POST-TRAUMATIC STRESS DISORDER
     Dosage: 10 MG QD PO
     Route: 048
     Dates: start: 20061129, end: 20061228

REACTIONS (2)
  - ACUTE MYOCARDIAL INFARCTION [None]
  - CORONARY ARTERY DISEASE [None]
